FAERS Safety Report 11110163 (Version 2)
Quarter: 2015Q2

REPORT INFORMATION
  Report Type: Report from Study
  Country: VE (occurrence: VE)
  Receive Date: 20150513
  Receipt Date: 20150527
  Transmission Date: 20150821
  Serious: Yes (Death)
  Sender: FDA-Public Use
  Company Number: PHHY2015VE055875

PATIENT
  Age: 75 Year
  Sex: Female

DRUGS (1)
  1. ACLASTA [Suspect]
     Active Substance: ZOLEDRONIC ACID
     Indication: OSTEOPOROSIS
     Dosage: 5 MG, ANNUALLY
     Route: 065

REACTIONS (4)
  - Hypertension [Fatal]
  - Cardiac disorder [Fatal]
  - Malaise [Fatal]
  - Respiratory arrest [Fatal]

NARRATIVE: CASE EVENT DATE: 20140430
